FAERS Safety Report 8818686 (Version 1)
Quarter: 2012Q4

REPORT INFORMATION
  Report Type: 
  Country: None (occurrence: US)
  Receive Date: 20121001
  Receipt Date: 20121001
  Transmission Date: 20130627
  Serious: Yes (Hospitalization)
  Sender: FDA-Public Use
  Company Number: US-TEVA-361369USA

PATIENT
  Age: 64 Year
  Sex: Male

DRUGS (1)
  1. NUVIGIL [Suspect]
     Dates: start: 20120815, end: 20120815

REACTIONS (4)
  - Feeling abnormal [Recovered/Resolved]
  - Pruritus [Recovered/Resolved]
  - Swollen tongue [Recovered/Resolved]
  - Lip swelling [Recovered/Resolved]
